FAERS Safety Report 20613698 (Version 2)
Quarter: 2022Q1

REPORT INFORMATION
  Report Type: Report from Study
  Country: US (occurrence: US)
  Receive Date: 20220319
  Receipt Date: 20220322
  Transmission Date: 20220423
  Serious: No
  Sender: FDA-Public Use
  Company Number: US-NOVARTISTESTPH-NVSC2022US063065

PATIENT
  Sex: Female

DRUGS (1)
  1. KESIMPTA [Suspect]
     Active Substance: OFATUMUMAB
     Indication: Multiple sclerosis
     Dosage: 20 MG, QMO  (20 MG / 0.4 ML) MONTHLY STARTING AT WEEK 4 AS DIRECTED
     Route: 058

REACTIONS (2)
  - Pain [Unknown]
  - Injection site pain [Unknown]
